FAERS Safety Report 25734595 (Version 1)
Quarter: 2025Q3

REPORT INFORMATION
  Report Type: Spontaneous
  Country: US (occurrence: US)
  Receive Date: 20250828
  Receipt Date: 20250828
  Transmission Date: 20251020
  Serious: No
  Sender: MSN LABORATORIES PRIVATE LIMITED
  Company Number: US-MSNLABS-2025MSNSPO02221

PATIENT

DRUGS (1)
  1. CAPECITABINE [Suspect]
     Active Substance: CAPECITABINE
     Indication: Adenocarcinoma of colon
     Route: 065
     Dates: start: 202504

REACTIONS (3)
  - Feeling of despair [Unknown]
  - Mental disorder [Unknown]
  - Depression [Unknown]

NARRATIVE: CASE EVENT DATE: 20250804
